FAERS Safety Report 9670148 (Version 1)
Quarter: 2013Q4

REPORT INFORMATION
  Report Type: Spontaneous
  Country: US (occurrence: US)
  Receive Date: 20131105
  Receipt Date: 20131105
  Transmission Date: 20140711
  Serious: Yes (Other)
  Sender: FDA-Public Use
  Company Number: US-FRI-1000050703

PATIENT
  Age: 23 Year
  Sex: Male

DRUGS (3)
  1. VIIBRYD [Suspect]
     Indication: DEPRESSION
     Dosage: 10 MG
     Route: 048
     Dates: start: 20131026
  2. PROPRANOLOL [Concomitant]
     Dosage: 20 MG
  3. GABAPENTIN [Concomitant]
     Dosage: 1200 MG

REACTIONS (1)
  - Convulsion [Unknown]
